FAERS Safety Report 7496770-9 (Version None)
Quarter: 2011Q2

REPORT INFORMATION
  Report Type: 
  Country: None (occurrence: None)
  Receive Date: 20110523
  Receipt Date: 20110517
  Transmission Date: 20111010
  Serious: Yes (Hospitalization)
  Sender: FDA-Public Use
  Company Number: B0719465A

PATIENT
  Sex: Male

DRUGS (9)
  1. TAMSULOSINE [Concomitant]
     Dosage: .4MG PER DAY
     Route: 048
  2. ABACAVIR SULFATE AND LAMIVUDINE [Suspect]
     Indication: HIV INFECTION
     Dosage: 1UNIT PER DAY
     Route: 048
     Dates: start: 20110308, end: 20110402
  3. CETIRIZINE HCL [Concomitant]
     Route: 065
  4. BACTRIM [Suspect]
     Dosage: 1UNIT PER DAY
     Route: 048
     Dates: start: 20110308, end: 20110401
  5. PREZISTA [Suspect]
     Indication: HIV INFECTION
     Dosage: 400MG TWICE PER DAY
     Route: 048
     Dates: start: 20110308, end: 20110401
  6. NORVIR [Suspect]
     Indication: HIV INFECTION
     Dosage: 100MG PER DAY
     Route: 048
     Dates: start: 20110308, end: 20110401
  7. UVEDOSE [Concomitant]
     Dosage: 100000IU PER DAY
     Route: 048
  8. ENALAPRIL MALEATE [Concomitant]
     Route: 065
  9. LEDERFOLINE [Concomitant]
     Dosage: 5MG PER DAY
     Route: 048

REACTIONS (2)
  - GENERALISED ERYTHEMA [None]
  - ANGIOEDEMA [None]
